FAERS Safety Report 7493121-0 (Version None)
Quarter: 2011Q2

REPORT INFORMATION
  Report Type: 
  Country: None (occurrence: None)
  Receive Date: 20110520
  Receipt Date: 20110516
  Transmission Date: 20111010
  Serious: Yes (Hospitalization, Other)
  Sender: FDA-Public Use
  Company Number: CA-US-EMD SERONO, INC.-230037J09CAN

PATIENT
  Sex: Female

DRUGS (5)
  1. REBIF [Suspect]
     Indication: MULTIPLE SCLEROSIS
     Route: 058
     Dates: start: 20090911
  2. REBIF [Suspect]
  3. REBIF [Suspect]
     Route: 058
  4. ELTROXIN [Concomitant]
  5. ADVIL LIQUI-GELS [Concomitant]

REACTIONS (11)
  - PYREXIA [None]
  - DIZZINESS [None]
  - FEELING HOT [None]
  - HYPERHIDROSIS [None]
  - PARALYSIS [None]
  - PARAESTHESIA [None]
  - INSOMNIA [None]
  - HYPOAESTHESIA [None]
  - THIRST [None]
  - DIABETES MELLITUS [None]
  - CHILLS [None]
